FAERS Safety Report 20072820 (Version 1)
Quarter: 2021Q4

REPORT INFORMATION
  Report Type: Spontaneous
  Country: US (occurrence: US)
  Receive Date: 20211116
  Receipt Date: 20211116
  Transmission Date: 20220303
  Serious: Yes (Other)
  Sender: FDA-Public Use
  Company Number: US-CELGENE-USA-20211103870

PATIENT
  Sex: Female

DRUGS (3)
  1. REVLIMID [Suspect]
     Active Substance: LENALIDOMIDE
     Indication: Plasma cell myeloma
     Dosage: ON DAY 1-21 FOLLOWED BY 7 DAY REST PERIOD
     Route: 048
     Dates: start: 202108
  2. REVLIMID [Suspect]
     Active Substance: LENALIDOMIDE
     Dosage: 5 MILLIGRAM
     Route: 048
     Dates: start: 20210916
  3. REVLIMID [Suspect]
     Active Substance: LENALIDOMIDE
     Dosage: ON DAY 1-21 FOLLOWED BY 7 DAY REST PERIOD
     Route: 048
     Dates: start: 202111

REACTIONS (1)
  - Neutrophil count decreased [Unknown]
